FAERS Safety Report 4759395-1 (Version None)
Quarter: 2005Q3

REPORT INFORMATION
  Report Type: 
  Country: None (occurrence: None)
  Receive Date: 20050831
  Receipt Date: 20050816
  Transmission Date: 20060218
  Serious: Yes (Hospitalization)
  Sender: FDA-Public Use
  Company Number: 2005BI015484

PATIENT
  Age: 53 Year
  Sex: Female
  Weight: 54.4316 kg

DRUGS (6)
  1. AVONEX [Suspect]
     Indication: MULTIPLE SCLEROSIS
     Dosage: 30 UG;QW;IM
     Route: 030
     Dates: start: 20020801, end: 20030801
  2. AVONEX [Suspect]
     Indication: MULTIPLE SCLEROSIS
     Dosage: SEE IMAGE
     Route: 030
     Dates: start: 20040601, end: 20041101
  3. AVONEX [Suspect]
     Indication: MULTIPLE SCLEROSIS
     Dosage: SEE IMAGE
     Route: 030
     Dates: start: 20050201, end: 20050201
  4. AVONEX [Suspect]
     Indication: MULTIPLE SCLEROSIS
     Dosage: SEE IMAGE
     Route: 030
     Dates: start: 20050201, end: 20050301
  5. AVONEX [Suspect]
     Indication: MULTIPLE SCLEROSIS
     Dosage: SEE IMAGE
     Route: 030
     Dates: start: 20050401, end: 20050601
  6. AVONEX [Suspect]
     Indication: MULTIPLE SCLEROSIS
     Dosage: SEE IMAGE
     Route: 030
     Dates: start: 20030801

REACTIONS (18)
  - ASTHENIA [None]
  - BACK PAIN [None]
  - BLADDER DISORDER [None]
  - CHILLS [None]
  - CONDITION AGGRAVATED [None]
  - CONSTIPATION [None]
  - DIFFICULTY IN WALKING [None]
  - HEADACHE [None]
  - HYPERTENSION [None]
  - INFLUENZA LIKE ILLNESS [None]
  - INTERVERTEBRAL DISC PROTRUSION [None]
  - MULTIPLE SCLEROSIS [None]
  - MUSCLE SPASMS [None]
  - PAIN [None]
  - SPINAL COLUMN STENOSIS [None]
  - SPINAL CORD COMPRESSION [None]
  - SPINAL DISORDER [None]
  - URINARY RETENTION [None]
